FAERS Safety Report 5708958-5 (Version None)
Quarter: 2008Q2

REPORT INFORMATION
  Report Type: 
  Country: None (occurrence: None)
  Receive Date: 20080418
  Receipt Date: 20080404
  Transmission Date: 20081010
  Serious: Yes (Hospitalization, Other)
  Sender: FDA-Public Use
  Company Number: DE-BAYER-200815106GPV

PATIENT
  Age: 16 Year
  Sex: Female
  Weight: 54 kg

DRUGS (1)
  1. DROSPIRENONE AND ETHINYL ESTRADIOL [Suspect]
     Indication: ORAL CONTRACEPTION
     Route: 048
     Dates: start: 20080214, end: 20080312

REACTIONS (7)
  - ABDOMINAL PAIN [None]
  - ASCITES [None]
  - HEREDITARY ANGIOEDEMA [None]
  - OEDEMA PERIPHERAL [None]
  - OVARIAN HYPERSTIMULATION SYNDROME [None]
  - THROMBOSIS [None]
  - VOMITING [None]
